FAERS Safety Report 14728155 (Version 2)
Quarter: 2018Q2

REPORT INFORMATION
  Report Type: Report from Study
  Country: JP (occurrence: JP)
  Receive Date: 20180406
  Receipt Date: 20180424
  Transmission Date: 20180711
  Serious: Yes (Death, Hospitalization)
  Sender: FDA-Public Use
  Company Number: JP-PFIZER INC-2018000574

PATIENT
  Age: 50 Year
  Sex: Female

DRUGS (1)
  1. RAPALIMUS [Suspect]
     Active Substance: SIROLIMUS
     Indication: LYMPHANGIOLEIOMYOMATOSIS
     Dosage: 2 MG, 1X/DAY
     Route: 048
     Dates: start: 20170825, end: 20170826

REACTIONS (3)
  - Condition aggravated [Fatal]
  - Lymphangioleiomyomatosis [Fatal]
  - Abdominal pain upper [Recovering/Resolving]

NARRATIVE: CASE EVENT DATE: 20170826
